FAERS Safety Report 8463196 (Version 4)
Quarter: 2013Q1

REPORT INFORMATION
  Report Type: Spontaneous
  Country: NL (occurrence: None)
  Receive Date: 20120312
  Receipt Date: 20130327
  Transmission Date: 20140127
  Serious: Yes (Life-Threatening, Hospitalization)
  Sender: FDA-Public Use
  Company Number: NL-023057

PATIENT
  Age: 68 Year
  Sex: Male
  Weight: 78.6 kg

DRUGS (8)
  1. CHLORAMBUCIL [Suspect]
     Dosage: 60 MILLIGRAM (60 MILLIGRAM, 2 IN 1 WEEKS). UNKNOWN
     Route: 048
     Dates: start: 20110314, end: 20110509
  2. METFORMIN HYDROCHLORIDE [Concomitant]
  3. NIFEDIPINE [Concomitant]
  4. ALLOPURINOL [Concomitant]
  5. SILDENAFIL [Concomitant]
  6. AMLODIPINE [Concomitant]
  7. CYCLOPHOSPHAMIDE [Concomitant]
  8. FLUDARABINE [Concomitant]

REACTIONS (7)
  - THROMBOCYTOPENIA [None]
  - FEBRILE NEUTROPENIA [None]
  - DYSPNOEA [None]
  - COUGH [None]
  - HAEMOGLOBIN DECREASED [None]
  - PLEURAL ADHESION [None]
  - Aspergillus infection [None]
